FAERS Safety Report 16202304 (Version 5)
Quarter: 2019Q2

REPORT INFORMATION
  Report Type: Spontaneous
  Country: US (occurrence: US)
  Receive Date: 20190416
  Receipt Date: 20190510
  Transmission Date: 20190711
  Serious: Yes (Hospitalization, Other)
  Sender: FDA-Public Use
  Company Number: US-UNITED THERAPEUTICS-UNT-2019-006568

PATIENT
  Age: 66 Year
  Sex: Male
  Weight: 101.59 kg

DRUGS (3)
  1. OPSUMIT [Concomitant]
     Active Substance: MACITENTAN
     Indication: PRODUCT USED FOR UNKNOWN INDICATION
     Dosage: UNK
     Route: 065
  2. REMODULIN [Suspect]
     Active Substance: TREPROSTINIL
     Indication: PULMONARY ARTERIAL HYPERTENSION
     Dosage: 0.050 ?G/KG, CONTINUING
     Route: 058
     Dates: start: 20150410
  3. ADCIRCA [Concomitant]
     Active Substance: TADALAFIL
     Indication: PULMONARY ARTERIAL HYPERTENSION
     Dosage: UNK
     Route: 065

REACTIONS (7)
  - Pneumonia viral [Unknown]
  - Weight increased [Unknown]
  - Abdominal pain upper [Unknown]
  - Dyspnoea at rest [Unknown]
  - Pain in jaw [Unknown]
  - Cardiac failure acute [Unknown]
  - Cough [Unknown]

NARRATIVE: CASE EVENT DATE: 20190409
